FAERS Safety Report 9174938 (Version 1)
Quarter: 2013Q1

REPORT INFORMATION
  Report Type: Spontaneous
  Country: FR (occurrence: None)
  Receive Date: 20130315
  Receipt Date: 20130315
  Transmission Date: 20140127
  Serious: Yes (Hospitalization)
  Sender: FDA-Public Use
  Company Number: SYM-2013-01547

PATIENT
  Age: 21 Year
  Sex: Female

DRUGS (5)
  1. RENITEC (ENALAPRIL MALEATE) (5 MILLIGRAM, TABLETS) (ENALAPRIL MALEATE) [Suspect]
     Indication: HYPERTENSION
     Route: 048
     Dates: start: 20130118, end: 20130128
  2. COZAAR (LOSARTAN POTASSIUM) (50 MILLIGRAM, TABLETS) (LOSARTAN POTASSIUM) [Suspect]
     Indication: HYPERTENSION
     Route: 048
     Dates: start: 20130118, end: 20130128
  3. CARDENSIEL (BISOPROLOL FUMARATE) (UNKNOWN) )BISOPROLOL FUMARATE) [Concomitant]
  4. AMLOR (AMLODIPINE BESILATE) (UNKNWN) (AMLODIPINE BESILATE) [Concomitant]
  5. LASILIX (FUROSEMIDE) (UNKNOWN) (FUROSEMIDE) [Concomitant]

REACTIONS (5)
  - Abdominal pain [None]
  - Vomiting [None]
  - Diarrhoea [None]
  - Amylase increased [None]
  - Lipase increased [None]
